FAERS Safety Report 5402545-4 (Version None)
Quarter: 2007Q3

REPORT INFORMATION
  Report Type: 
  Country: None (occurrence: None)
  Receive Date: 20070801
  Receipt Date: 20070123
  Transmission Date: 20080115
  Serious: Yes (Life-Threatening, Other)
  Sender: FDA-Public Use
  Company Number: A0627477A

PATIENT
  Age: 43 Year
  Sex: Female

DRUGS (2)
  1. IMITREX [Suspect]
     Indication: MIGRAINE
     Dosage: 100MG AS REQUIRED
     Route: 048
     Dates: start: 20061107, end: 20061107
  2. IMITREX [Suspect]
     Route: 058
     Dates: start: 20061108, end: 20061108

REACTIONS (7)
  - ANAPHYLACTIC REACTION [None]
  - DYSPNOEA [None]
  - FACE OEDEMA [None]
  - LARYNGEAL OEDEMA [None]
  - RASH [None]
  - SWELLING [None]
  - THERAPEUTIC RESPONSE DECREASED [None]
